FAERS Safety Report 17190897 (Version 2)
Quarter: 2020Q1

REPORT INFORMATION
  Report Type: Spontaneous
  Country: CA (occurrence: CA)
  Receive Date: 20191223
  Receipt Date: 20200306
  Transmission Date: 20200409
  Serious: Yes (Other)
  Sender: FDA-Public Use
  Company Number: CA-PFIZER INC-2019547638

PATIENT
  Age: 59 Year
  Sex: Male

DRUGS (12)
  1. SANDOSTATIN [Suspect]
     Active Substance: OCTREOTIDE ACETATE
     Dosage: 20 MG, MONTHLY
     Route: 030
  2. HYDROCHLOROTHIAZIDE. [Concomitant]
     Active Substance: HYDROCHLOROTHIAZIDE
     Dosage: 25 MG, 1X/DAY (1 EVERY 24 HOURS)
     Route: 065
  3. QUINAPRIL. [Concomitant]
     Active Substance: QUINAPRIL
     Dosage: UNK
     Route: 065
  4. IMODIUM [Suspect]
     Active Substance: LOPERAMIDE HYDROCHLORIDE
     Dosage: UNK
     Route: 065
  5. ROSUVASTATIN CALCIUM. [Suspect]
     Active Substance: ROSUVASTATIN CALCIUM
     Dosage: 5 MG, UNK
     Route: 065
  6. GLYBURIDE. [Concomitant]
     Active Substance: GLYBURIDE
     Dosage: 5 MG, 2X/DAY
     Route: 065
  7. METFORMIN [Suspect]
     Active Substance: METFORMIN HYDROCHLORIDE
     Dosage: 2 DF, 2X/DAY
     Route: 065
  8. SANDOSTATIN [Suspect]
     Active Substance: OCTREOTIDE ACETATE
     Indication: CARCINOID TUMOUR
     Dosage: 20 MG, UNK
     Route: 030
  9. LUTETIUM (LU 177) [Concomitant]
     Active Substance: LUTETIUM LU-177
     Dosage: UNK
     Route: 065
  10. AMLODIPINE BESILATE [Suspect]
     Active Substance: AMLODIPINE BESYLATE
     Dosage: UNK
     Route: 065
  11. ZOPICLONE [Suspect]
     Active Substance: ZOPICLONE
     Dosage: UNK
     Route: 065
  12. TRAJENTA [Concomitant]
     Active Substance: LINAGLIPTIN
     Dosage: 5 MG, 2X/DAY
     Route: 065

REACTIONS (24)
  - 5-hydroxyindolacetic acid in urine increased [Recovering/Resolving]
  - Arteriosclerosis coronary artery [Recovering/Resolving]
  - Diarrhoea [Recovering/Resolving]
  - Gamma-glutamyltransferase increased [Recovering/Resolving]
  - Haematocrit decreased [Recovering/Resolving]
  - Hepatic neoplasm [Recovering/Resolving]
  - Low density lipoprotein decreased [Recovering/Resolving]
  - Syncope [Recovering/Resolving]
  - Haemoglobin decreased [Recovering/Resolving]
  - Pruritus [Recovering/Resolving]
  - Inappropriate schedule of product administration [Recovering/Resolving]
  - Expired product administered [Recovering/Resolving]
  - Aspartate aminotransferase increased [Recovering/Resolving]
  - Vomiting [Recovering/Resolving]
  - Platelet count decreased [Recovering/Resolving]
  - Urticaria [Recovering/Resolving]
  - Blood potassium decreased [Recovering/Resolving]
  - Blood pressure systolic increased [Recovering/Resolving]
  - Neoplasm [Recovering/Resolving]
  - Red blood cell count decreased [Recovering/Resolving]
  - Blood mercury abnormal [Recovering/Resolving]
  - Nausea [Recovering/Resolving]
  - Blood glucose increased [Recovering/Resolving]
  - Glycosylated haemoglobin increased [Recovering/Resolving]
